FAERS Safety Report 7208627-9 (Version None)
Quarter: 2010Q4

REPORT INFORMATION
  Report Type: 
  Country: None (occurrence: None)
  Receive Date: 20101222
  Receipt Date: 20101209
  Transmission Date: 20110411
  Serious: Yes (Death)
  Sender: FDA-Public Use
  Company Number: TPA2010A06182

PATIENT
  Sex: 0

DRUGS (1)
  1. ULORIC [Suspect]
     Indication: GOUT

REACTIONS (1)
  - MYOCARDIAL INFARCTION [None]
